FAERS Safety Report 10929910 (Version 1)
Quarter: 2015Q1

REPORT INFORMATION
  Report Type: Spontaneous
  Country: CA (occurrence: CA)
  Receive Date: 20150319
  Receipt Date: 20150319
  Transmission Date: 20150721
  Serious: Yes (Other)
  Sender: FDA-Public Use
  Company Number: CA-SA-2015SA033394

PATIENT
  Sex: Female

DRUGS (21)
  1. ROSUVASTATIN CALCIUM. [Concomitant]
     Active Substance: ROSUVASTATIN CALCIUM
  2. APO-HYDRO [Concomitant]
     Active Substance: HYDROCHLOROTHIAZIDE
  3. EZETROL [Concomitant]
     Active Substance: EZETIMIBE
  4. ACETAMINOPHEN. [Concomitant]
     Active Substance: ACETAMINOPHEN
  5. ERGOCALCIFEROL. [Concomitant]
     Active Substance: ERGOCALCIFEROL
  6. LISINOPRIL. [Concomitant]
     Active Substance: LISINOPRIL
  7. METHYLPREDNISOLONE. [Concomitant]
     Active Substance: METHYLPREDNISOLONE
  8. SYNTHROID [Concomitant]
     Active Substance: LEVOTHYROXINE SODIUM
  9. LYRICA [Suspect]
     Active Substance: PREGABALIN
     Route: 065
  10. DEPO-MEDROL [Suspect]
     Active Substance: METHYLPREDNISOLONE ACETATE
     Dosage: FORM: SUSPENSION INTRAARTICULAR
     Route: 014
  11. ALTACE [Concomitant]
     Active Substance: RAMIPRIL
  12. RITUXAN [Suspect]
     Active Substance: RITUXIMAB
     Route: 042
  13. DIAMICRON [Suspect]
     Active Substance: GLICLAZIDE
     Route: 065
  14. ELTROXIN [Concomitant]
     Active Substance: LEVOTHYROXINE
  15. PREDNISONE. [Concomitant]
     Active Substance: PREDNISONE
  16. NEXIUM [Suspect]
     Active Substance: ESOMEPRAZOLE MAGNESIUM
     Route: 065
  17. DOMPERIDONE [Suspect]
     Active Substance: DOMPERIDONE
     Route: 065
  18. ATACAND [Concomitant]
     Active Substance: CANDESARTAN CILEXETIL
  19. LANTUS [Suspect]
     Active Substance: INSULIN GLARGINE
     Route: 058
  20. AMLODIPINE BESILATE [Concomitant]
     Active Substance: AMLODIPINE BESYLATE
  21. SITAGLIPTIN PHOSPHATE [Concomitant]
     Active Substance: SITAGLIPTIN PHOSPHATE

REACTIONS (3)
  - Arthritis [Unknown]
  - Condition aggravated [Unknown]
  - Coronary artery occlusion [Unknown]
